FAERS Safety Report 7683007-0 (Version None)
Quarter: 2011Q3

REPORT INFORMATION
  Report Type: 
  Country: None (occurrence: None)
  Receive Date: 20110812
  Receipt Date: 20110812
  Transmission Date: 20111222
  Serious: Yes (Other)
  Sender: FDA-Public Use
  Company Number: None

PATIENT
  Age: 60 Year
  Sex: Male
  Weight: 90.7194 kg

DRUGS (2)
  1. AUGMENTIN '875' [Suspect]
     Indication: EAR INFECTION
     Dosage: 875-125 B.I.D. ORAL
     Route: 048
     Dates: start: 20110728, end: 20110730
  2. AUGMENTIN '875' [Suspect]
     Indication: EAR INFECTION
     Dosage: 875-125 B.I.D. ORAL
     Route: 048
     Dates: start: 20020101

REACTIONS (2)
  - DIARRHOEA [None]
  - PRODUCT QUALITY ISSUE [None]
